FAERS Safety Report 19250259 (Version 3)
Quarter: 2021Q2

REPORT INFORMATION
  Report Type: Spontaneous
  Country: US (occurrence: US)
  Receive Date: 20210513
  Receipt Date: 20210618
  Transmission Date: 20210717
  Serious: Yes (Hospitalization, Other)
  Sender: FDA-Public Use
  Company Number: US-STRONGBRIDGE BIOPHARMA-2021-STR-000166

PATIENT
  Sex: Female

DRUGS (1)
  1. KEVEYIS [Suspect]
     Active Substance: DICHLORPHENAMIDE
     Indication: FAMILIAL PERIODIC PARALYSIS
     Dosage: 50 MG, BID
     Route: 048
     Dates: start: 20210318

REACTIONS (10)
  - Dizziness [Unknown]
  - Pharyngeal disorder [Unknown]
  - Speech disorder [Unknown]
  - Endotracheal intubation [Unknown]
  - Drug hypersensitivity [Unknown]
  - Product administration interrupted [Unknown]
  - Dysphagia [Unknown]
  - Dyspnoea [Unknown]
  - Syncope [Recovered/Resolved]
  - Surgery [Unknown]
